FAERS Safety Report 25551811 (Version 2)
Quarter: 2025Q3

REPORT INFORMATION
  Report Type: Spontaneous
  Country: PE (occurrence: PE)
  Receive Date: 20250714
  Receipt Date: 20250714
  Transmission Date: 20251021
  Serious: Yes (Hospitalization, Other)
  Sender: Hugel Aesthetics
  Company Number: PE-Hugel Aesthetics-2180520

PATIENT
  Age: 66 Year
  Sex: Female

DRUGS (2)
  1. BOTULINUM TOXIN NOS [Suspect]
     Active Substance: BOTULINUM TOXIN NOS
     Indication: Anal fissure
  2. BOTULINUM TOXIN NOS [Suspect]
     Active Substance: BOTULINUM TOXIN NOS
     Indication: Hypertonia

REACTIONS (11)
  - Ulcer [Recovering/Resolving]
  - Pain [Unknown]
  - Proctalgia [Recovering/Resolving]
  - Off label use [Recovered/Resolved]
  - Haemorrhoids [Recovered/Resolved]
  - Chronic papillomatous dermatitis [Recovered/Resolved]
  - Fibrosis [Unknown]
  - Hypertonia [Recovering/Resolving]
  - Anal fissure [Recovering/Resolving]
  - Hyperkeratosis [Unknown]
  - Skin lesion [Unknown]
